FAERS Safety Report 4484924-5 (Version None)
Quarter: 2004Q3

REPORT INFORMATION
  Report Type: 
  Country: None (occurrence: None)
  Receive Date: 20040921
  Receipt Date: 20030804
  Transmission Date: 20050211
  Serious: Yes (Hospitalization, Disabling)
  Sender: FDA-Public Use
  Company Number: 163-20785-03080067 (0)

PATIENT
  Age: 68 Year
  Sex: Female

DRUGS (15)
  1. THALOMID [Suspect]
     Indication: MULTIPLE MYELOMA
     Dosage: 50 MG, DAILY, ORAL
     Route: 048
     Dates: start: 20000301, end: 20010201
  2. DEXAMETHASONE [Suspect]
     Indication: MULTIPLE MYELOMA
  3. ALFA INTERFERON (INTERFERON ALFA) [Suspect]
     Indication: MULTIPLE MYELOMA
  4. MELPHALAN (MELPHALAN) [Suspect]
     Indication: MULTIPLE MYELOMA
     Dosage: 200 MG/M2
     Dates: start: 20001001
  5. NORVASC [Concomitant]
  6. ALLOPURINOL [Concomitant]
  7. NEURONTIN [Concomitant]
  8. ESTRACE [Concomitant]
  9. ACYCLOVIR [Concomitant]
  10. ERYTHROPOIETIN (ERYTHROPOIETIN) [Concomitant]
  11. MULTIVITAMIN [Concomitant]
  12. CALCIUM (CALCIUM) [Concomitant]
  13. MAGNESIUM (MAGNESIUM) [Concomitant]
  14. VITAMIN E [Concomitant]
  15. VITAMIN B (VITAMIN B) [Concomitant]

REACTIONS (15)
  - ABDOMINAL DISCOMFORT [None]
  - ANOREXIA [None]
  - ASTHENIA [None]
  - BACK PAIN [None]
  - BLOOD UREA INCREASED [None]
  - BRONCHOPNEUMONIA [None]
  - CREATININE RENAL CLEARANCE DECREASED [None]
  - FATIGUE [None]
  - HAEMOGLOBIN DECREASED [None]
  - HEART RATE IRREGULAR [None]
  - HYPERTENSION [None]
  - NEUROPATHY [None]
  - OEDEMA PERIPHERAL [None]
  - PAIN IN EXTREMITY [None]
  - THROMBOCYTOPENIA [None]
